FAERS Safety Report 10049512 (Version 1)
Quarter: 2014Q1

REPORT INFORMATION
  Report Type: Spontaneous
  Country: US (occurrence: None)
  Receive Date: 20140331
  Receipt Date: 20140331
  Transmission Date: 20141002
  Serious: Yes (Disabling)
  Sender: FDA-Public Use
  Company Number: None

PATIENT
  Age: 59 Year
  Sex: Female
  Weight: 89.81 kg

DRUGS (3)
  1. DULOXETINE [Suspect]
     Indication: PAIN
     Dosage: ONE CAPSULE, ONCE DAILY
     Dates: start: 20140314, end: 20140324
  2. DULOXETINE [Suspect]
     Dosage: ONE CAPSULE, ONCE DAILY
     Dates: start: 20140314, end: 20140324
  3. DULOXETINE [Suspect]
     Dosage: ONE CAPSULE, ONCE DAILY
     Dates: start: 20140314, end: 20140324

REACTIONS (4)
  - Insomnia [None]
  - Irritability [None]
  - Mood altered [None]
  - Disturbance in attention [None]
